FAERS Safety Report 8499536 (Version 3)
Quarter: 2012Q4

REPORT INFORMATION
  Report Type: Report from Study
  Country: JP (occurrence: JP)
  Receive Date: 20120409
  Receipt Date: 20121001
  Transmission Date: 20130627
  Serious: Yes (Other)
  Sender: FDA-Public Use
  Company Number: PHHY2012JP029541

PATIENT
  Age: 64 Year
  Sex: Male

DRUGS (1)
  1. AMN107 [Suspect]
     Indication: CHRONIC MYELOID LEUKAEMIA
     Dosage: 600 mg, daily
     Route: 048
     Dates: start: 20120305, end: 20120331

REACTIONS (8)
  - Hepatic function abnormal [Unknown]
  - Aspartate aminotransferase increased [Unknown]
  - Alanine aminotransferase increased [Unknown]
  - Liver disorder [Recovered/Resolved]
  - Rash generalised [Recovered/Resolved]
  - Headache [Unknown]
  - Pyrexia [Recovered/Resolved]
  - Eosinophil count increased [Recovered/Resolved]
